FAERS Safety Report 21974134 (Version 1)
Quarter: 2023Q1

REPORT INFORMATION
  Report Type: Report from Study
  Country: CA (occurrence: CA)
  Receive Date: 20230209
  Receipt Date: 20230209
  Transmission Date: 20230418
  Serious: Yes (Other)
  Sender: FDA-Public Use
  Company Number: CA-BAUSCH-BL-2023-001524

PATIENT
  Age: 77 Year
  Sex: Female

DRUGS (5)
  1. CONTRAVE [Suspect]
     Active Substance: BUPROPION HYDROCHLORIDE\NALTREXONE HYDROCHLORIDE
     Indication: Weight control
     Dosage: 90/8 MG, 1 TAB PER DAY
     Route: 048
     Dates: start: 20230124
  2. ACEBUTOLOL [Concomitant]
     Active Substance: ACEBUTOLOL
     Indication: Hypertension
     Dosage: 600 MG.(300 MG, 1 IN 12 HR)
     Route: 048
     Dates: end: 20230125
  3. ACEBUTOLOL [Concomitant]
     Active Substance: ACEBUTOLOL
     Dosage: PHARMACIST SAID TO GO UP BY 1 PILL WITH ACEBUTOLOL, THEN SHE WAS TAKING 4 PILLS MORNING AND EVENING
     Route: 048
     Dates: start: 20230125
  4. INDAPAMIDE [Concomitant]
     Active Substance: INDAPAMIDE
     Indication: Hypertension
     Dosage: 2.5 MG (2.5 MG,1 IN 24 HR)
     Route: 048
  5. AMLODIPINE [Concomitant]
     Active Substance: AMLODIPINE BESYLATE
     Indication: Hypertension
     Dosage: 10 MG (10 MG,1 IN 24 HR)
     Route: 048

REACTIONS (2)
  - Hypertension [Not Recovered/Not Resolved]
  - Intentional dose omission [Unknown]

NARRATIVE: CASE EVENT DATE: 20230124
